FAERS Safety Report 21093179 (Version 3)
Quarter: 2022Q3

REPORT INFORMATION
  Report Type: Other
  Country: US (occurrence: None)
  Receive Date: 20220718
  Receipt Date: 20220731
  Transmission Date: 20221026
  Serious: Yes (Death)
  Sender: FDA-Public Use
  Company Number: US-ROCHE-3140134

PATIENT
  Sex: Female

DRUGS (3)
  1. ALECENSA [Suspect]
     Active Substance: ALECTINIB HYDROCHLORIDE
     Indication: Bronchial carcinoma
     Dosage: TAKE 4 CAPSULE(S) BY MOUTH IN THE MORNING AND TAKE 4 CAPSULE(S) BEFORE BEDTIME
     Route: 048
  2. TRAMADOL [Concomitant]
     Active Substance: TRAMADOL
  3. TOPROL XL [Concomitant]
     Active Substance: METOPROLOL SUCCINATE

REACTIONS (1)
  - Death [Fatal]
